FAERS Safety Report 9750058 (Version 3)
Quarter: 2015Q3

REPORT INFORMATION
  Report Type: Spontaneous
  Country: GB (occurrence: GB)
  Receive Date: 20131212
  Receipt Date: 20150730
  Transmission Date: 20151125
  Serious: No
  Sender: FDA-Public Use
  Company Number: GB-GILEAD-GB-CVT-090744

PATIENT
  Sex: Male

DRUGS (6)
  1. RANEXA [Suspect]
     Active Substance: RANOLAZINE
     Indication: PRODUCT USED FOR UNKNOWN INDICATION
     Dates: start: 200906
  2. RAMIPRIL                           /00885601/ [Concomitant]
  3. BISOPROLOL                         /00802601/ [Concomitant]
     Active Substance: BISOPROLOL
  4. RANITIDINE                         /00550801/ [Concomitant]
  5. ASPIRIN                            /00002701/ [Concomitant]
     Active Substance: ASPIRIN
  6. CLOPIDOGREL                        /01220701/ [Concomitant]

REACTIONS (2)
  - Hyperhidrosis [Recovering/Resolving]
  - Cold sweat [Recovering/Resolving]
